FAERS Safety Report 23611478 (Version 2)
Quarter: 2024Q2

REPORT INFORMATION
  Report Type: Spontaneous
  Country: US (occurrence: US)
  Receive Date: 20240308
  Receipt Date: 20240409
  Transmission Date: 20240715
  Serious: No
  Sender: FDA-Public Use
  Company Number: US-PFIZER INC-202400058898

PATIENT
  Age: 81 Year
  Sex: Female

DRUGS (7)
  1. IBRANCE [Suspect]
     Active Substance: PALBOCICLIB
     Indication: Breast cancer
     Dosage: 100 MG, CYCLIC (TAKE 1 TABLET DAILY ON DAYS 1 THROUGH 21 OF 28 DAY CYCLE)
     Route: 048
     Dates: start: 20230621
  2. LETROZOLE [Concomitant]
     Active Substance: LETROZOLE
  3. LOSARTAN POTASSIUM [Concomitant]
     Active Substance: LOSARTAN POTASSIUM
  4. LUMIGAN [Concomitant]
     Active Substance: BIMATOPROST
  5. TIMOLOL MALEATE [Concomitant]
     Active Substance: TIMOLOL MALEATE
  6. VENLAFAXINE [Concomitant]
     Active Substance: VENLAFAXINE HYDROCHLORIDE
  7. ZOLEDRONIC ACID [Concomitant]
     Active Substance: ZOLEDRONIC ACID

REACTIONS (3)
  - Stomatitis [Not Recovered/Not Resolved]
  - Rash [Not Recovered/Not Resolved]
  - Functional gastrointestinal disorder [Not Recovered/Not Resolved]
